FAERS Safety Report 4389604-2 (Version None)
Quarter: 2004Q3

REPORT INFORMATION
  Report Type: 
  Country: None (occurrence: None)
  Receive Date: 20040702
  Receipt Date: 20040625
  Transmission Date: 20050211
  Serious: Yes (Hospitalization)
  Sender: FDA-Public Use
  Company Number: GB-MERCK-0406GBR00236

PATIENT
  Age: 90 Year
  Sex: Female

DRUGS (6)
  1. FOSAMAX [Suspect]
     Route: 048
  2. FUROSEMIDE [Concomitant]
     Indication: OEDEMA
     Route: 048
  3. IBUPROFEN [Suspect]
     Route: 048
  4. NITRAZEPAM [Concomitant]
     Indication: SLEEP DISORDER
     Route: 048
  5. VIOXX [Suspect]
     Route: 048
  6. SENNA [Concomitant]
     Indication: CONSTIPATION
     Route: 048

REACTIONS (2)
  - HAEMATEMESIS [None]
  - MELAENA [None]
